FAERS Safety Report 9677432 (Version 1)
Quarter: 2013Q4

REPORT INFORMATION
  Report Type: Report from Study
  Country: AU (occurrence: AU)
  Receive Date: 20131108
  Receipt Date: 20131108
  Transmission Date: 20140711
  Serious: Yes (Hospitalization, Other)
  Sender: FDA-Public Use
  Company Number: AU-SA-2013SA111255

PATIENT
  Sex: Male

DRUGS (18)
  1. LANTUS [Suspect]
     Indication: PRODUCT USED FOR UNKNOWN INDICATION
     Route: 058
     Dates: start: 20130818
  2. SOTALOL [Concomitant]
  3. UREX [Concomitant]
  4. SPIRONOLACTONE [Concomitant]
  5. AVAPRO [Concomitant]
  6. LOSEC [Concomitant]
  7. ALLOPURINOL [Concomitant]
  8. BETAMIN [Concomitant]
  9. CALTRATE [Concomitant]
  10. OSTELIN [Concomitant]
  11. WARFARIN [Concomitant]
  12. LIPEX [Concomitant]
  13. PERIACTIN [Concomitant]
  14. SIFROL [Concomitant]
  15. LYRICA [Concomitant]
  16. ACTILAX [Concomitant]
  17. INTAL FORTE [Concomitant]
  18. SEREVENT [Concomitant]

REACTIONS (2)
  - Spinal compression fracture [Recovering/Resolving]
  - Fall [Unknown]
